FAERS Safety Report 25032424 (Version 2)
Quarter: 2025Q2

REPORT INFORMATION
  Report Type: Spontaneous
  Country: US (occurrence: US)
  Receive Date: 20250303
  Receipt Date: 20250509
  Transmission Date: 20250716
  Serious: Yes (Hospitalization)
  Sender: MERCK SHARP & DOHME LLC
  Company Number: US-009507513-2258569

PATIENT
  Age: 69 Year
  Sex: Male

DRUGS (2)
  1. PEMBROLIZUMAB [Suspect]
     Active Substance: PEMBROLIZUMAB
     Indication: Thyroid neoplasm
  2. LENVATINIB [Suspect]
     Active Substance: LENVATINIB
     Indication: Thyroid neoplasm
     Dosage: 20 MG PO QD, STRENGTH: 20 MG
     Route: 048
     Dates: start: 20240926

REACTIONS (3)
  - Myasthenia gravis [Unknown]
  - Drug hypersensitivity [Unknown]
  - Myocarditis [Unknown]

NARRATIVE: CASE EVENT DATE: 20250116
